FAERS Safety Report 17007874 (Version 1)
Quarter: 2019Q4

REPORT INFORMATION
  Report Type: Spontaneous
  Country: KR (occurrence: KR)
  Receive Date: 20191108
  Receipt Date: 20191108
  Transmission Date: 20200122
  Serious: Yes (Other)
  Sender: FDA-Public Use
  Company Number: KR-AMGEN-KORSP2019183013

PATIENT
  Sex: Male

DRUGS (2)
  1. KYPROLIS [Suspect]
     Active Substance: CARFILZOMIB
     Indication: PLASMA CELL MYELOMA
     Dosage: 60 MILLIGRAM, TWICE A WEEK ON ALTERNATE WEEKS
     Route: 042
     Dates: start: 201807
  2. DEXAMETHASONE. [Suspect]
     Active Substance: DEXAMETHASONE
     Indication: PLASMA CELL MYELOMA
     Dosage: UNK
     Route: 065

REACTIONS (5)
  - Cataract operation [Recovering/Resolving]
  - Off label use [Unknown]
  - Blood pressure increased [Not Recovered/Not Resolved]
  - Lacrimation increased [Unknown]
  - Insomnia [Unknown]

NARRATIVE: CASE EVENT DATE: 201807
